FAERS Safety Report 10558916 (Version 2)
Quarter: 2014Q4

REPORT INFORMATION
  Report Type: Report from Study
  Country: BR (occurrence: BR)
  Receive Date: 20141101
  Receipt Date: 20141101
  Transmission Date: 20150529
  Serious: Yes (Other)
  Sender: FDA-Public Use
  Company Number: PHHY2014BR121389

PATIENT
  Sex: Female
  Weight: 58.6 kg

DRUGS (8)
  1. PANTOPRAZOLE [Concomitant]
     Active Substance: PANTOPRAZOLE SODIUM
     Indication: PROPHYLAXIS
     Dosage: 1 DF (1 TABLET), QD (IN THE MORNING, IN FASTING)
     Dates: start: 2014
  2. ENALAPRIL [Suspect]
     Active Substance: ENALAPRIL
     Dosage: 1 DF (1 TABLET OF 20MG), Q12H
  3. OXCARBAZEPIN [Concomitant]
     Active Substance: OXCARBAZEPINE
     Indication: SEIZURE
     Dosage: 1.5 DF (1 TABLET AND A HALF), DAILY
     Dates: start: 2014
  4. EXELON PATCH [Suspect]
     Active Substance: RIVASTIGMINE
     Indication: OFF LABEL USE
  5. CYMBALTA [Concomitant]
     Active Substance: DULOXETINE HYDROCHLORIDE
     Indication: DEPRESSION
     Dosage: 1 DF (1 CAPSULE), QD (IN THE MORNING)
     Dates: start: 2014
  6. EXELON PATCH [Suspect]
     Active Substance: RIVASTIGMINE
     Indication: DEPRESSION
     Dosage: 9.5 MG (PATCH 10 CM2), DAILY
     Route: 062
     Dates: start: 201401
  7. ENALAPRIL [Suspect]
     Active Substance: ENALAPRIL
     Indication: HYPERTENSION
     Dosage: (TABLET OF 10MG)
  8. BICONCOR [Concomitant]
     Indication: HYPERTENSIVE CRISIS
     Dosage: 1 DF (1 TABLET), QHS

REACTIONS (4)
  - Application site hypersensitivity [Not Recovered/Not Resolved]
  - Application site erythema [Not Recovered/Not Resolved]
  - Hypertensive crisis [Recovered/Resolved]
  - Application site pruritus [Not Recovered/Not Resolved]

NARRATIVE: CASE EVENT DATE: 2014
